FAERS Safety Report 8216134 (Version 5)
Quarter: 2012Q4

REPORT INFORMATION
  Report Type: Report from Study
  Country: US (occurrence: US)
  Receive Date: 20111031
  Receipt Date: 20120905
  Transmission Date: 20130627
  Serious: Yes (Death, Hospitalization, Other)
  Sender: FDA-Public Use
  Company Number: US-JNJFOC-20111012463

PATIENT
  Age: 75 Year
  Sex: Male
  Weight: 86.2 kg

DRUGS (23)
  1. ABIRATERONE ACETATE [Suspect]
     Route: 048
  2. ABIRATERONE ACETATE [Suspect]
     Indication: PROSTATE CANCER
     Route: 048
     Dates: start: 20110723, end: 20111024
  3. PREDNISONE [Suspect]
     Indication: PROSTATE CANCER
     Route: 048
     Dates: start: 20110723, end: 20111024
  4. SUNITINIB [Suspect]
     Indication: PROSTATE CANCER
     Dosage: 2 weeks on, 1 week off
     Route: 048
     Dates: start: 20111011, end: 20111025
  5. TYLENOL [Concomitant]
     Indication: PYREXIA
     Route: 048
  6. ATORVASTATIN [Concomitant]
     Route: 048
  7. LOVENOX [Concomitant]
     Route: 058
  8. IPRATROPIUM BROMIDE [Concomitant]
     Route: 065
  9. LEVALBUTEROL [Concomitant]
     Route: 065
  10. LEVOFLOXACIN [Concomitant]
     Route: 042
  11. ZOFRAN [Concomitant]
     Indication: VOMITING
     Route: 042
  12. ZOFRAN [Concomitant]
     Indication: NAUSEA
     Route: 042
  13. OXYCODONE [Concomitant]
     Indication: PAIN
     Route: 048
  14. ZOSYN [Concomitant]
     Route: 065
  15. SENOKOT S [Concomitant]
     Indication: CONSTIPATION
     Route: 048
  16. FLOMAX [Concomitant]
     Route: 048
  17. AMBIEN [Concomitant]
     Indication: SLEEP DISORDER
     Dosage: treatment for greater than 5 years
     Route: 048
  18. CALCIUM W/VITAMIN D [Concomitant]
     Indication: MEDICAL DIET
     Route: 048
     Dates: start: 2009
  19. COUMADIN [Concomitant]
     Indication: ANTICOAGULANT THERAPY
     Route: 048
     Dates: start: 2009
  20. FLOMAX [Concomitant]
     Indication: URINE FLOW DECREASED
     Route: 048
     Dates: start: 2009
  21. HYDROCODONE [Concomitant]
     Indication: PAIN
     Dosage: every 4 hours as required; only 1 at night for those dysesthesias started 2009
     Route: 048
  22. LIPITOR [Concomitant]
     Indication: HYPERCHOLESTEROLAEMIA
     Route: 048
     Dates: start: 2006
  23. NEURONTIN [Concomitant]
     Indication: NEUROPATHY PERIPHERAL
     Route: 048
     Dates: start: 20110815, end: 20111010

REACTIONS (2)
  - Hypotension [Recovered/Resolved]
  - Pneumonia [Fatal]
